FAERS Safety Report 5528187-8 (Version None)
Quarter: 2007Q4

REPORT INFORMATION
  Report Type: 
  Country: None (occurrence: None)
  Receive Date: 20071121
  Receipt Date: 20071109
  Transmission Date: 20080405
  Serious: Yes (Life-Threatening, Other)
  Sender: FDA-Public Use
  Company Number: 163898ISR

PATIENT
  Age: 84 Year
  Sex: Female

DRUGS (4)
  1. NITROFURANTOIN [Suspect]
     Dosage: ORAL
     Route: 048
     Dates: end: 20070926
  2. WARFARIN SODIUM [Suspect]
     Dosage: 3 MG, ORAL
     Route: 048
     Dates: start: 20070917
  3. MICONAZOLE [Suspect]
     Dosage: 72 MG (24 MG, 3 IN 1 D), ORAL
     Route: 048
     Dates: start: 20070918, end: 20070925
  4. ERGOCALCIFEROL [Suspect]
     Dosage: ORAL
     Route: 048
     Dates: end: 20070926

REACTIONS (5)
  - BLOOD CALCIUM DECREASED [None]
  - CONFUSIONAL STATE [None]
  - DRUG INTERACTION [None]
  - INTERNATIONAL NORMALISED RATIO INCREASED [None]
  - SOMNOLENCE [None]
